FAERS Safety Report 5926375-X (Version None)
Quarter: 2008Q4

REPORT INFORMATION
  Report Type: 
  Country: None (occurrence: None)
  Receive Date: 20081022
  Receipt Date: 20081009
  Transmission Date: 20090506
  Serious: Yes (Other)
  Sender: FDA-Public Use
  Company Number: US-RB-005245-08

PATIENT
  Age: 43 Year
  Sex: Male
  Weight: 121.5 kg

DRUGS (2)
  1. DELSYM [Suspect]
     Dosage: 2 TABLESPOONS TAKEN PER DOSE
     Route: 048
     Dates: start: 20080930, end: 20081005
  2. AMOXICILLIN [Concomitant]

REACTIONS (2)
  - ACCIDENTAL OVERDOSE [None]
  - LOSS OF CONSCIOUSNESS [None]
